FAERS Safety Report 14324508 (Version 2)
Quarter: 2018Q1

REPORT INFORMATION
  Report Type: Spontaneous
  Country: PT (occurrence: PT)
  Receive Date: 20171226
  Receipt Date: 20180104
  Transmission Date: 20180509
  Serious: Yes (Congenital Anomaly, Other)
  Sender: FDA-Public Use
  Company Number: PT-AUROBINDO-AUR-APL-2017-46450

PATIENT
  Age: 9 Year
  Sex: Male

DRUGS (3)
  1. LITHIUM. [Suspect]
     Active Substance: LITHIUM
     Indication: BIPOLAR DISORDER
     Dosage: 400 MG, DAILY
  2. VALPROIC ACID. [Suspect]
     Active Substance: VALPROIC ACID
     Indication: BIPOLAR DISORDER
     Dosage: 1000 MG, DAILY
     Route: 064
  3. RISPERIDONE. [Suspect]
     Active Substance: RISPERIDONE
     Indication: BIPOLAR DISORDER
     Dosage: 1 MG, DAILY
     Route: 064

REACTIONS (17)
  - Somatoform genitourinary disorder [Unknown]
  - Dysmorphism [Unknown]
  - Cognitive disorder [Unknown]
  - Learning disability [Unknown]
  - Cardiac disorder [Unknown]
  - Foetal exposure during pregnancy [Unknown]
  - Anxiety [Unknown]
  - Enuresis [Unknown]
  - Hypoxic-ischaemic encephalopathy [Unknown]
  - Hypoacusis [Unknown]
  - Disturbance in attention [Unknown]
  - Otitis media [Unknown]
  - Developmental delay [Unknown]
  - Obesity [Unknown]
  - Atrial septal defect [Unknown]
  - Cryptorchism [Recovered/Resolved]
  - Speech disorder [Unknown]
